FAERS Safety Report 4598416-6 (Version None)
Quarter: 2005Q1

REPORT INFORMATION
  Report Type: 
  Country: None (occurrence: None)
  Receive Date: 20050204
  Receipt Date: 20031120
  Transmission Date: 20050727
  Serious: Yes (Death)
  Sender: FDA-Public Use
  Company Number: PHEH2003US10708

PATIENT
  Age: 41 Year
  Sex: Male

DRUGS (3)
  1. CLOZARIL [Suspect]
     Indication: SCHIZOAFFECTIVE DISORDER
     Dosage: 600 MG, QD, ORAL
     Route: 048
  2. PAXIL (PAROXETINE HDYROCHLORIDE) [Concomitant]
  3. KLONOPIN [Concomitant]

REACTIONS (1)
  - DEATH [None]
